FAERS Safety Report 8578205-8 (Version None)
Quarter: 2012Q3

REPORT INFORMATION
  Report Type: 
  Country: None (occurrence: None)
  Receive Date: 20120808
  Receipt Date: 20120802
  Transmission Date: 20120928
  Serious: No
  Sender: FDA-Public Use
  Company Number: US-PFIZER INC-2012188900

PATIENT
  Age: 47 Year
  Sex: Female
  Weight: 63.946 kg

DRUGS (8)
  1. CYMBALTA [Concomitant]
     Dosage: UNK
  2. INSULIN [Concomitant]
     Indication: DIABETES MELLITUS
     Dosage: 120 MG, 3X/DAY
  3. CYMBALTA [Concomitant]
     Dosage: 30 MG, 2X/DAY
  4. HYDROCHLOROTHIAZIDE [Concomitant]
     Indication: HYPERTENSION
     Dosage: 12.5 MG, DAILY
  5. LYRICA [Suspect]
     Indication: FIBROMYALGIA
     Dosage: 75 MG, 2X/DAY
     Dates: end: 20120701
  6. GLUCOPHAGE [Concomitant]
     Indication: DIABETES MELLITUS
     Dosage: 500 MG, 4X/DAY
  7. LISINOPRIL [Concomitant]
     Indication: HYPERTENSION
     Dosage: 40 MG, DAILY
  8. CYMBALTA [Concomitant]
     Indication: MENTAL DISORDER
     Dosage: 60 MG, DAILY

REACTIONS (5)
  - MEMORY IMPAIRMENT [None]
  - VISUAL IMPAIRMENT [None]
  - GLYCOSYLATED HAEMOGLOBIN INCREASED [None]
  - WEIGHT INCREASED [None]
  - ALOPECIA [None]
